FAERS Safety Report 8087993 (Version 4)
Quarter: 2013Q1

REPORT INFORMATION
  Report Type: Spontaneous
  Country: US (occurrence: US)
  Receive Date: 20110812
  Receipt Date: 20130220
  Transmission Date: 20140127
  Serious: Yes (Life-Threatening, Hospitalization, Congenital Anomaly, Other)
  Sender: FDA-Public Use
  Company Number: US-PFIZER INC-2011182516

PATIENT
  Sex: Female
  Weight: 2.98 kg

DRUGS (12)
  1. ZOLOFT [Suspect]
     Dosage: 50 MG, 1X/DAY EVERY NIGHT
     Route: 064
     Dates: start: 20000829, end: 20000912
  2. ZOLOFT [Suspect]
     Dosage: 50 MG, 1X/DAY EVERY NIGHT
     Route: 064
     Dates: start: 200105, end: 20010829
  3. KEFLEX [Concomitant]
     Indication: URINARY TRACT INFECTION
     Dosage: UNK
     Route: 064
  4. MACROBID [Concomitant]
     Indication: URINARY TRACT INFECTION
     Dosage: UNK
     Route: 064
  5. FLAGYL [Concomitant]
     Indication: VAGINITIS BACTERIAL
     Dosage: UNK
     Route: 064
  6. TERAZOL [Concomitant]
     Indication: FUNGAL INFECTION
     Dosage: UNK
     Route: 064
  7. AVANDIA [Concomitant]
     Dosage: UNK
     Route: 064
  8. FLEXTRA [Concomitant]
     Dosage: UNK
     Route: 064
  9. ULTRAM [Concomitant]
     Dosage: UNK
     Route: 064
  10. AMARYL [Concomitant]
     Dosage: UNK
     Route: 064
  11. INSULIN [Concomitant]
     Dosage: UNK
     Route: 064
  12. CELEBREX [Concomitant]
     Dosage: UNK
     Route: 064

REACTIONS (11)
  - Maternal exposure timing unspecified [Unknown]
  - Atrial septal defect [Unknown]
  - Persistent foetal circulation [Recovered/Resolved]
  - Ventricular septal defect [Recovered/Resolved]
  - Neonatal respiratory distress syndrome [Recovered/Resolved]
  - Mitral valve incompetence [Unknown]
  - Heart disease congenital [Unknown]
  - Tricuspid valve incompetence [Unknown]
  - Patent ductus arteriosus [Unknown]
  - Sepsis neonatal [Unknown]
  - Atelectasis neonatal [Unknown]
